FAERS Safety Report 6400939-1 (Version None)
Quarter: 2009Q4

REPORT INFORMATION
  Report Type: 
  Country: None (occurrence: None)
  Receive Date: 20091009
  Receipt Date: 20091005
  Transmission Date: 20100525
  Serious: Yes (Death)
  Sender: FDA-Public Use
  Company Number: 20097503

PATIENT
  Age: 61 Year
  Sex: Male

DRUGS (3)
  1. LIORESAL [Suspect]
     Indication: MUSCLE SPASTICITY
     Dosage: DAILY, INTRATHECAL
     Route: 037
  2. MORPHINE SULFATE [Concomitant]
  3. CLONIDINE [Concomitant]

REACTIONS (1)
  - DEATH [None]
